FAERS Safety Report 9637917 (Version 1)
Quarter: 2013Q4

REPORT INFORMATION
  Report Type: Spontaneous
  Country: US (occurrence: US)
  Receive Date: 20131022
  Receipt Date: 20131022
  Transmission Date: 20140711
  Serious: Yes (Other)
  Sender: FDA-Public Use
  Company Number: US-PFIZER INC-2013299789

PATIENT
  Age: 72 Year
  Sex: Male
  Weight: 81.63 kg

DRUGS (3)
  1. LIPITOR [Suspect]
     Indication: BLOOD CHOLESTEROL INCREASED
     Dosage: 20 MG, 1X/DAY
     Route: 048
  2. LIPITOR [Suspect]
     Dosage: 10 MG, 1X/DAY
     Route: 048
  3. LIPITOR [Suspect]
     Dosage: UNK, 1X/DAY
     Route: 048

REACTIONS (4)
  - Neoplasm malignant [Unknown]
  - Intentional drug misuse [Unknown]
  - Drug ineffective [Unknown]
  - Tooth loss [Unknown]
